FAERS Safety Report 12126766 (Version 1)
Quarter: 2016Q1

REPORT INFORMATION
  Report Type: Spontaneous
  Country: None (occurrence: PL)
  Receive Date: 20160229
  Receipt Date: 20160229
  Transmission Date: 20160526
  Serious: Yes (Other)
  Sender: FDA-Public Use
  Company Number: PL-MERCK KGAA-1048457

PATIENT

DRUGS (1)
  1. NOVOTHYROX [Suspect]
     Active Substance: LEVOTHYROXINE SODIUM

REACTIONS (16)
  - Pyrexia [None]
  - Decreased appetite [None]
  - Chest pain [None]
  - Asthenia [None]
  - Headache [None]
  - Hyperhidrosis [None]
  - Systemic lupus erythematosus [None]
  - Hot flush [None]
  - Weight decreased [None]
  - Erythema [None]
  - Dysphagia [None]
  - Tremor [None]
  - Restlessness [None]
  - Sleep disorder [None]
  - Eye haemorrhage [None]
  - Hypotonia [None]
